FAERS Safety Report 12906912 (Version 2)
Quarter: 2016Q4

REPORT INFORMATION
  Report Type: Spontaneous
  Country: None (occurrence: US)
  Receive Date: 20161103
  Receipt Date: 20161220
  Transmission Date: 20170207
  Serious: Yes (Death, Hospitalization)
  Sender: FDA-Public Use
  Company Number: US-ACORDA-ACO_129688_2016

PATIENT
  Age: 73 Year
  Sex: Female
  Weight: 67.2 kg

DRUGS (11)
  1. VITAMIN D [Concomitant]
     Active Substance: CHOLECALCIFEROL
     Indication: PRODUCT USED FOR UNKNOWN INDICATION
     Route: 065
  2. ASPIRIN. [Concomitant]
     Active Substance: ASPIRIN
     Indication: PRODUCT USED FOR UNKNOWN INDICATION
     Route: 065
  3. PROVIGIL [Concomitant]
     Active Substance: MODAFINIL
     Indication: FATIGUE
     Dosage: UNK, QD
     Route: 048
  4. OXYBUTYNIN [Concomitant]
     Active Substance: OXYBUTYNIN
     Indication: NEUROGENIC BLADDER
  5. LEVOTHYROXINE. [Concomitant]
     Active Substance: LEVOTHYROXINE
     Indication: HYPOTHYROIDISM
     Route: 065
  6. TRAMADOL. [Concomitant]
     Active Substance: TRAMADOL
     Indication: PAIN
     Dosage: 50 MG, QID PRN
     Route: 048
  7. TEGRETOL [Concomitant]
     Active Substance: CARBAMAZEPINE
     Indication: PRODUCT USED FOR UNKNOWN INDICATION
     Dosage: 100 MG, QID
     Route: 048
  8. AMPYRA [Suspect]
     Active Substance: DALFAMPRIDINE
     Indication: GAIT DISTURBANCE
     Dosage: 10 MG, BID
     Route: 048
  9. TIZANIDINE. [Suspect]
     Active Substance: TIZANIDINE
     Indication: PRODUCT USED FOR UNKNOWN INDICATION
     Dosage: 2 MG, TID
     Route: 048
  10. MAGNESIUM [Concomitant]
     Active Substance: MAGNESIUM
     Indication: PRODUCT USED FOR UNKNOWN INDICATION
     Route: 065
  11. CALCIUM [Concomitant]
     Active Substance: CALCIUM
     Indication: PRODUCT USED FOR UNKNOWN INDICATION
     Route: 065

REACTIONS (6)
  - Failure to thrive [Fatal]
  - Hepatic enzyme increased [Unknown]
  - Secondary progressive multiple sclerosis [Fatal]
  - Trigeminal neuralgia [Not Recovered/Not Resolved]
  - Condition aggravated [Not Recovered/Not Resolved]
  - Pain [Fatal]

NARRATIVE: CASE EVENT DATE: 20160727
